FAERS Safety Report 14484510 (Version 3)
Quarter: 2018Q4

REPORT INFORMATION
  Report Type: Report from Study
  Country: CO (occurrence: CO)
  Receive Date: 20180205
  Receipt Date: 20181224
  Transmission Date: 20190204
  Serious: Yes (Other)
  Sender: FDA-Public Use
  Company Number: CO-ROCHE-2065403

PATIENT
  Age: 46 Year
  Sex: Female
  Weight: 57 kg

DRUGS (5)
  1. DEFLAZACORTE [Suspect]
     Active Substance: DEFLAZACORT
     Indication: PRODUCT USED FOR UNKNOWN INDICATION
     Route: 065
  2. DEXACORT (DEXAMETHASONE) [Concomitant]
     Active Substance: DEXAMETHASONE
     Indication: PRODUCT USED FOR UNKNOWN INDICATION
     Dosage: 6 MG, Q12H
     Route: 065
  3. XOLAIR [Suspect]
     Active Substance: OMALIZUMAB
     Route: 058
     Dates: start: 20181115
  4. XOLAIR [Suspect]
     Active Substance: OMALIZUMAB
     Indication: CHRONIC SPONTANEOUS URTICARIA
     Dosage: 300 MG, QMO
     Route: 058
     Dates: start: 20161122
  5. XOLAIR [Suspect]
     Active Substance: OMALIZUMAB
     Dosage: 300 MG, BIW (ONCE EVERY TWO WEEKS (EVERY 15 DAYS))
     Route: 058

REACTIONS (21)
  - Skin lesion [Unknown]
  - Eating disorder [Unknown]
  - Retinal dystrophy [Unknown]
  - Laryngeal inflammation [Unknown]
  - Drug ineffective [Unknown]
  - Inflammation [Unknown]
  - Pulmonary pain [Unknown]
  - Blindness [Unknown]
  - Dyspnoea [Unknown]
  - Hepatic steatosis [Unknown]
  - Hepatic function abnormal [Recovered/Resolved]
  - Haemoglobin decreased [Unknown]
  - Malaise [Unknown]
  - Weight fluctuation [Unknown]
  - Abdominal discomfort [Recovered/Resolved]
  - Tracheal inflammation [Recovered/Resolved]
  - Antinuclear antibody positive [Unknown]
  - Musculoskeletal chest pain [Recovered/Resolved]
  - Urticaria [Recovering/Resolving]
  - Blepharitis [Unknown]
  - Vitamin D deficiency [Unknown]

NARRATIVE: CASE EVENT DATE: 20170628
